FAERS Safety Report 15584448 (Version 1)
Quarter: 2018Q4

REPORT INFORMATION
  Report Type: Spontaneous
  Country: US (occurrence: US)
  Receive Date: 20181105
  Receipt Date: 20181105
  Transmission Date: 20190205
  Serious: No
  Sender: FDA-Public Use
  Company Number: US-SA-2018SA274864

PATIENT
  Age: 71 Year
  Sex: Male

DRUGS (1)
  1. LANTUS [Suspect]
     Active Substance: INSULIN GLARGINE
     Indication: TYPE 2 DIABETES MELLITUS
     Dosage: 37 U, QD
     Route: 065
     Dates: start: 20150514

REACTIONS (6)
  - Underdose [Unknown]
  - Injection site swelling [Unknown]
  - Injection site pain [Unknown]
  - Malaise [Unknown]
  - Complication associated with device [Unknown]
  - Device operational issue [Unknown]
